FAERS Safety Report 15308572 (Version 1)
Quarter: 2018Q3

REPORT INFORMATION
  Report Type: Spontaneous
  Country: ES (occurrence: ES)
  Receive Date: 20180822
  Receipt Date: 20180822
  Transmission Date: 20181010
  Serious: Yes (Other)
  Sender: FDA-Public Use
  Company Number: ES-009507513-1808ESP005180

PATIENT
  Age: 52 Year
  Sex: Male

DRUGS (4)
  1. TOBRAMYCIN. [Concomitant]
     Active Substance: TOBRAMYCIN
     Indication: PSEUDOMONAS INFECTION
     Dosage: 100 MG, TID
     Route: 042
  2. CIPROFLOXACIN. [Suspect]
     Active Substance: CIPROFLOXACIN
     Indication: PSEUDOMONAS INFECTION
     Dosage: UNK
  3. IMIPENEM AND CILASTATIN [Suspect]
     Active Substance: CILASTATIN SODIUM\IMIPENEM
     Indication: PSEUDOMONAS INFECTION
     Dosage: 1 G, TID
  4. CEFTAZIDIME. [Concomitant]
     Active Substance: CEFTAZIDIME
     Indication: PSEUDOMONAS INFECTION
     Dosage: 1 G, TID
     Route: 042

REACTIONS (1)
  - Pathogen resistance [Unknown]
